FAERS Safety Report 8206764-3 (Version None)
Quarter: 2012Q1

REPORT INFORMATION
  Report Type: 
  Country: None (occurrence: None)
  Receive Date: 20120309
  Receipt Date: 20120223
  Transmission Date: 20120608
  Serious: Yes (Hospitalization)
  Sender: FDA-Public Use
  Company Number: 2012SP010176

PATIENT
  Age: 85 Year
  Sex: Female

DRUGS (11)
  1. PRAVASTATIN [Concomitant]
  2. MIRTAZAPINE [Suspect]
     Indication: DEPRESSION
     Dosage: 15 MG;QD;PO
     Route: 048
     Dates: end: 20120127
  3. SPIRONOLACTONE [Suspect]
     Indication: HYPERTENSION
     Dosage: 1 DF;QD;PO
     Route: 048
     Dates: end: 20120127
  4. POLYETHYLENE GLYCOL [Concomitant]
  5. LACTULOSE [Concomitant]
  6. CLOPIDOGREL (PLAVIX) [Concomitant]
  7. RABEPRAZOLE SODIUM [Concomitant]
  8. STALEVO (STALEVO) [Suspect]
     Indication: PARKINSON'S DISEASE
     Dosage: PO, 5 DF;QD;PO
     Dates: end: 20111201
  9. STALEVO (STALEVO) [Suspect]
     Indication: PARKINSON'S DISEASE
     Dosage: PO, 5 DF;QD;PO
     Dates: start: 20111215, end: 20120126
  10. IMOVANE [Concomitant]
  11. OXAZEPAM [Concomitant]

REACTIONS (8)
  - PSYCHOMOTOR RETARDATION [None]
  - FALL [None]
  - HYPONATRAEMIA [None]
  - WEIGHT DECREASED [None]
  - DISORIENTATION [None]
  - GENERAL PHYSICAL HEALTH DETERIORATION [None]
  - DECREASED APPETITE [None]
  - ASTHENIA [None]
